FAERS Safety Report 5928709-9 (Version None)
Quarter: 2008Q4

REPORT INFORMATION
  Report Type: 
  Country: None (occurrence: None)
  Receive Date: 20081023
  Receipt Date: 20081017
  Transmission Date: 20090506
  Serious: Yes (Hospitalization)
  Sender: FDA-Public Use
  Company Number: DE-TEVA-177402ISR

PATIENT
  Sex: Female

DRUGS (2)
  1. COPAXONE [Suspect]
     Indication: MULTIPLE SCLEROSIS
     Route: 058
     Dates: start: 20080529
  2. IBUPROFEN [Suspect]

REACTIONS (9)
  - ABNORMAL BEHAVIOUR [None]
  - AGGRESSION [None]
  - ARTHRALGIA [None]
  - IRRITABILITY [None]
  - LIGAMENT RUPTURE [None]
  - LYMPHOEDEMA [None]
  - MENTAL DISORDER [None]
  - NAUSEA [None]
  - OEDEMA PERIPHERAL [None]
